FAERS Safety Report 6726431-2 (Version None)
Quarter: 2010Q2

REPORT INFORMATION
  Report Type: 
  Country: None (occurrence: None)
  Receive Date: 20100514
  Receipt Date: 20100505
  Transmission Date: 20101027
  Serious: Yes (Hospitalization)
  Sender: FDA-Public Use
  Company Number: IT-JNJFOC-20100501732

PATIENT
  Age: 48 Year
  Sex: Male
  Weight: 78 kg

DRUGS (16)
  1. REMICADE [Suspect]
     Indication: PSORIATIC ARTHROPATHY
     Route: 042
  2. REMICADE [Suspect]
     Route: 042
  3. REMICADE [Suspect]
     Indication: COLITIS ULCERATIVE
     Route: 042
  4. REMICADE [Suspect]
     Route: 042
  5. ADALIMUMAB [Suspect]
     Indication: COLITIS ULCERATIVE
     Route: 058
  6. ADALIMUMAB [Suspect]
     Route: 058
  7. ADALIMUMAB [Suspect]
     Route: 058
  8. ADALIMUMAB [Suspect]
     Route: 058
  9. ADALIMUMAB [Suspect]
     Route: 058
  10. ADALIMUMAB [Suspect]
     Indication: PSORIATIC ARTHROPATHY
     Route: 058
  11. ADALIMUMAB [Suspect]
     Route: 058
  12. ADALIMUMAB [Suspect]
     Route: 058
  13. ADALIMUMAB [Suspect]
     Route: 058
  14. ADALIMUMAB [Suspect]
     Route: 058
  15. PANTOPRAZOLE [Concomitant]
     Indication: GASTRITIS
     Route: 048
  16. SALAZOPYRIN [Concomitant]
     Indication: COLITIS ULCERATIVE
     Route: 048

REACTIONS (1)
  - DERMATITIS BULLOUS [None]
